FAERS Safety Report 18628332 (Version 3)
Quarter: 2025Q4

REPORT INFORMATION
  Report Type: Spontaneous
  Country: EU (occurrence: EU)
  Receive Date: 20201217
  Receipt Date: 20251017
  Transmission Date: 20260118
  Serious: Yes (Death, Hospitalization, Other)
  Sender: MYLAN
  Company Number: EU-PFIZER INC-2020450508

PATIENT
  Age: 44 Year
  Sex: Male
  Weight: 145 kg

DRUGS (11)
  1. VANCOMYCIN [Suspect]
     Active Substance: VANCOMYCIN
     Indication: Product used for unknown indication
     Dosage: 1 GRAM, QW (1.0 MG, WEEKLY)
  2. CYCLOSPORINE [Suspect]
     Active Substance: CYCLOSPORINE
     Indication: Immunosuppression
     Dosage: 3 MILLIGRAM/KILOGRAM, QD (3 MG/KG, DAILY)
  3. TACROLIMUS [Suspect]
     Active Substance: TACROLIMUS
     Indication: Product used for unknown indication
     Dosage: 1.5 MILLIGRAM, QD (1.5 MG, DAILY)
  4. TACROLIMUS [Suspect]
     Active Substance: TACROLIMUS
     Dosage: 14 MILLIGRAM (14 MG)
  5. MEDROL [Suspect]
     Active Substance: METHYLPREDNISOLONE
     Indication: Immunosuppression
     Dosage: 8 MILLIGRAM
  6. METRONIDAZOLE [Suspect]
     Active Substance: METRONIDAZOLE
     Indication: Product used for unknown indication
     Dosage: 500 MILLIGRAM, Q8H (500 MG, EVERY 8 HOURS)
  7. MYFORTIC [Suspect]
     Active Substance: MYCOPHENOLATE SODIUM
     Indication: Product used for unknown indication
     Dosage: 380 MG, 2-0-1
  8. MYFORTIC [Suspect]
     Active Substance: MYCOPHENOLATE SODIUM
     Dosage: 360 MILLIGRAM (360 MG, 1-0-1)
  9. METHYLPREDNISOLONE [Suspect]
     Active Substance: METHYLPREDNISOLONE
     Indication: Immunosuppression
     Dosage: 6 MILLIGRAM (6 MG)
  10. METHYLPREDNISOLONE [Suspect]
     Active Substance: METHYLPREDNISOLONE
     Dosage: 24 MILLIGRAM, QD (24 MG, DAILY)
  11. AMPICILLIN SODIUM\SULBACTAM SODIUM [Suspect]
     Active Substance: AMPICILLIN SODIUM\SULBACTAM SODIUM
     Indication: Product used for unknown indication
     Dosage: 8 MILLIGRAM, Q8H (8 MG, EVERY 8 HOURS)

REACTIONS (4)
  - Blood pressure increased [Fatal]
  - Drug ineffective [Fatal]
  - Skin disorder [Unknown]
  - Sepsis [Unknown]
